FAERS Safety Report 8295760-6 (Version None)
Quarter: 2012Q2

REPORT INFORMATION
  Report Type: 
  Country: None (occurrence: None)
  Receive Date: 20120416
  Receipt Date: 20120416
  Transmission Date: 20120825
  Serious: Yes (Other)
  Sender: FDA-Public Use
  Company Number: None

PATIENT
  Sex: Male

DRUGS (3)
  1. AMARYL [Suspect]
     Indication: DIABETES MELLITUS
  2. METFORMIN HCL [Suspect]
  3. ACTOS [Suspect]

REACTIONS (3)
  - HYPOAESTHESIA [None]
  - BLOOD PRESSURE INCREASED [None]
  - HYPERHIDROSIS [None]
